FAERS Safety Report 14690089 (Version 9)
Quarter: 2018Q3

REPORT INFORMATION
  Report Type: Spontaneous
  Country: PL (occurrence: PL)
  Receive Date: 20180328
  Receipt Date: 20180831
  Transmission Date: 20181010
  Serious: Yes (Other)
  Sender: FDA-Public Use
  Company Number: PL-ROCHE-2093503

PATIENT
  Age: 57 Year
  Sex: Male
  Weight: 86 kg

DRUGS (20)
  1. DIAZEPAM. [Interacting]
     Active Substance: DIAZEPAM
     Indication: SLEEP DISORDER
  2. DIAZEPAM. [Interacting]
     Active Substance: DIAZEPAM
     Indication: INITIAL INSOMNIA
     Dosage: 20 MG, QD / USED IN THE MORNING AND IN THE EVENING AT 20 MG
     Route: 065
  3. FLUOXETINE [Interacting]
     Active Substance: FLUOXETINE HYDROCHLORIDE
     Indication: PAIN
  4. DEPREXETIN [Suspect]
     Active Substance: FLUOXETINE HYDROCHLORIDE
     Indication: DIABETES MELLITUS
  5. ZOFENIL [Concomitant]
     Active Substance: ZOFENOPRIL
     Route: 065
  6. SIMVASTATIN. [Concomitant]
     Active Substance: SIMVASTATIN
     Route: 065
  7. TRAZODONE [Concomitant]
     Active Substance: TRAZODONE HYDROCHLORIDE
     Dosage: 75 MG 3 HOURS BEFORE THE PLANNED BEDTIME
     Route: 065
  8. DIAZEPAM. [Suspect]
     Active Substance: DIAZEPAM
     Indication: NIGHTMARE
     Dosage: 40 MG, 40 DAY?USED BEFORE GOING TO SLEEP
     Route: 065
  9. MIANSERIN [Interacting]
     Active Substance: MIANSERIN
     Indication: NIGHTMARE
     Dosage: 10 MG (USED BEFORE GOING SLEEP), 10 DAYS
     Route: 065
     Dates: start: 20171122, end: 20171124
  10. PARACETAMOL [Concomitant]
     Active Substance: ACETAMINOPHEN
     Route: 065
  11. ZOLPIDEM [Interacting]
     Active Substance: ZOLPIDEM\ZOLPIDEM TARTRATE
     Indication: SLEEP DISORDER
     Dosage: 10 MG, ONCE DAILY, USED BEFORE GOING TO SLEEP / 10 MG, 10 DAYS
     Route: 048
     Dates: start: 20171122, end: 20171124
  12. DEPREXETIN [Suspect]
     Active Substance: FLUOXETINE HYDROCHLORIDE
     Indication: FIBROMYALGIA
     Dosage: 20 MG, ONCE DAILY (1D), USED
     Route: 048
     Dates: start: 20171103, end: 20171122
  13. METFORMIN [Concomitant]
     Active Substance: METFORMIN HYDROCHLORIDE
     Indication: TYPE 2 DIABETES MELLITUS
     Dosage: UNK
     Route: 065
  14. ZOLPIDEM [Interacting]
     Active Substance: ZOLPIDEM\ZOLPIDEM TARTRATE
     Indication: INSOMNIA
  15. METFORMIN [Concomitant]
     Active Substance: METFORMIN HYDROCHLORIDE
     Indication: INSOMNIA
  16. FLUOXETINE [Interacting]
     Active Substance: FLUOXETINE HYDROCHLORIDE
     Indication: FIBROMYALGIA
     Dosage: 20 MG, QD / USED IN THE MORNING AND IN THE EVENING AT 20 MG
     Route: 065
     Dates: start: 20171103, end: 20171122
  17. BISOCARD [Concomitant]
     Active Substance: BISOPROLOL
     Route: 065
  18. MIANSERIN [Interacting]
     Active Substance: MIANSERIN
     Indication: INSOMNIA
     Dosage: HALF AN HOUR BEFORE GOING TO BED
     Route: 065
  19. MIANSERIN [Interacting]
     Active Substance: MIANSERIN
     Indication: SLEEP DISORDER
  20. DULOXETINE. [Concomitant]
     Active Substance: DULOXETINE
     Dosage: 30 MG IN THE MORNING WAS INITIATED.
     Route: 065

REACTIONS (8)
  - Initial insomnia [Recovered/Resolved]
  - Blood glucose fluctuation [Recovered/Resolved]
  - Dry mouth [Recovering/Resolving]
  - Drug interaction [Unknown]
  - Poor quality sleep [Recovered/Resolved]
  - Nightmare [Recovered/Resolved]
  - Sleep disorder [Recovered/Resolved]
  - Somnolence [Recovering/Resolving]
